FAERS Safety Report 8394812-X (Version None)
Quarter: 2012Q2

REPORT INFORMATION
  Report Type: 
  Country: None (occurrence: None)
  Receive Date: 20120524
  Receipt Date: 20120512
  Transmission Date: 20120825
  Serious: Yes (Hospitalization)
  Sender: FDA-Public Use
  Company Number: UTC-018766

PATIENT
  Age: 62 Year
  Sex: Female
  Weight: 90.9 kg

DRUGS (8)
  1. REMODULIN [Suspect]
     Indication: COR PULMONALE CHRONIC
     Dosage: 25.92 UG/KG (0.018 UG/KG,1 IN 1 MIN),INTRAVENOUS), (0.024 UG/KG),INTRAVENOUS
     Route: 042
     Dates: start: 20120213
  2. REMODULIN [Suspect]
     Indication: PULMONARY HYPERTENSION
     Dosage: 25.92 UG/KG (0.018 UG/KG,1 IN 1 MIN),INTRAVENOUS), (0.024 UG/KG),INTRAVENOUS
     Route: 042
     Dates: start: 20120213
  3. REMODULIN [Suspect]
     Indication: CONNECTIVE TISSUE DISORDER
     Dosage: 25.92 UG/KG (0.018 UG/KG,1 IN 1 MIN),INTRAVENOUS), (0.024 UG/KG),INTRAVENOUS
     Route: 042
     Dates: start: 20120213
  4. REMODULIN [Suspect]
     Indication: COR PULMONALE CHRONIC
     Dosage: 25.92 UG/KG (0.018 UG/KG,1 IN 1 MIN),INTRAVENOUS), (0.024 UG/KG),INTRAVENOUS
     Route: 042
     Dates: start: 20120213
  5. REMODULIN [Suspect]
     Indication: PULMONARY HYPERTENSION
     Dosage: 25.92 UG/KG (0.018 UG/KG,1 IN 1 MIN),INTRAVENOUS), (0.024 UG/KG),INTRAVENOUS
     Route: 042
     Dates: start: 20120213
  6. REMODULIN [Suspect]
     Indication: CONNECTIVE TISSUE DISORDER
     Dosage: 25.92 UG/KG (0.018 UG/KG,1 IN 1 MIN),INTRAVENOUS), (0.024 UG/KG),INTRAVENOUS
     Route: 042
     Dates: start: 20120213
  7. TRACLEER [Concomitant]
  8. DIURETICS (DIURETICS) [Concomitant]

REACTIONS (5)
  - VOMITING [None]
  - MUSCULOSKELETAL PAIN [None]
  - CHEST PAIN [None]
  - DRUG HYPERSENSITIVITY [None]
  - CATHETER SITE PAIN [None]
